FAERS Safety Report 8982046 (Version 1)
Quarter: 2012Q4

REPORT INFORMATION
  Report Type: 
  Country: US (occurrence: US)
  Receive Date: 20121222
  Receipt Date: 20121222
  Transmission Date: 20130627
  Serious: Yes (Hospitalization, Other)
  Sender: FDA-Public Use
  Company Number: US-B.I. PHARMACEUTICALS,INC./RIDGEFIELD-2012-BI-03463GD

PATIENT
  Sex: Female

DRUGS (4)
  1. PRAMIPEXOLE [Suspect]
     Indication: MOVEMENT DISORDER
     Dosage: 0.75 mg
  2. CARBIDOPA-LEVODOPA [Concomitant]
     Indication: PARKINSON^S DISEASE
  3. ENTACAPONE [Concomitant]
     Indication: PARKINSON^S DISEASE
  4. DULOXETINE [Concomitant]
     Indication: MUSCLE SPASTICITY
     Dosage: 60 mg

REACTIONS (9)
  - Fall [Unknown]
  - Obsessive-compulsive disorder [Recovered/Resolved]
  - Obsessive thoughts [Recovered/Resolved]
  - Compulsive handwashing [Recovered/Resolved]
  - Depressed mood [Unknown]
  - Anxiety [Unknown]
  - Mood altered [Unknown]
  - Anhedonia [Unknown]
  - Asthenia [Unknown]
